FAERS Safety Report 19185131 (Version 1)
Quarter: 2021Q2

REPORT INFORMATION
  Report Type: Spontaneous
  Country: US (occurrence: US)
  Receive Date: 20210427
  Receipt Date: 20210427
  Transmission Date: 20210717
  Serious: Yes (Life-Threatening, Hospitalization)
  Sender: FDA-Public Use
  Company Number: US-MYLANLABS-2021M1024937

PATIENT
  Age: 10 Year
  Sex: Female

DRUGS (3)
  1. VASOPRESSIN. [Suspect]
     Active Substance: VASOPRESSIN
     Indication: SEPTIC SHOCK
     Dosage: AT MAXIMAL DOSES
     Route: 065
  2. EPINEPHRINE. [Suspect]
     Active Substance: EPINEPHRINE
     Indication: SEPTIC SHOCK
     Dosage: AT MAXIMAL DOSES
     Route: 065
  3. NOREPINEPHRINE. [Suspect]
     Active Substance: NOREPINEPHRINE
     Indication: SEPTIC SHOCK
     Dosage: AT MAXIMAL DOSES
     Route: 065

REACTIONS (1)
  - Drug ineffective [Unknown]
